FAERS Safety Report 23015508 (Version 1)
Quarter: 2023Q4

REPORT INFORMATION
  Report Type: Spontaneous
  Country: CN (occurrence: CN)
  Receive Date: 20231002
  Receipt Date: 20231002
  Transmission Date: 20240110
  Serious: Yes (Other)
  Sender: FDA-Public Use
  Company Number: None

PATIENT
  Age: 73 Year
  Sex: Female
  Weight: 53 kg

DRUGS (12)
  1. CYCLOPHOSPHAMIDE [Suspect]
     Active Substance: CYCLOPHOSPHAMIDE
     Indication: Breast cancer female
     Dosage: 0.8 G, ONCE, DILUTED WITH 100 ML OF 0.9% SODIUM CHLORIDE INJECTION (SECOND CHEMOTHERAPY)
     Route: 041
     Dates: start: 20230829, end: 20230829
  2. CYCLOPHOSPHAMIDE [Suspect]
     Active Substance: CYCLOPHOSPHAMIDE
     Indication: Chemotherapy
  3. SODIUM CHLORIDE [Suspect]
     Active Substance: SODIUM CHLORIDE
     Indication: Medication dilution
     Dosage: (0.9%) 100 ML, ONCE, USED TO DILUTE 0.8 G OF CYCLOPHOSPHAMIDE FOR INJECTION (SECOND CHEMOTHERAPY)
     Route: 041
     Dates: start: 20230829, end: 20230829
  4. SODIUM CHLORIDE [Suspect]
     Active Substance: SODIUM CHLORIDE
     Dosage: (0.9%) 250 ML, ONCE, USED TO DILUTE 110 MG OF DOCETAXEL INJECTION (SECOND CHEMOTHERAPY)
     Route: 041
     Dates: start: 20230829, end: 20230829
  5. SODIUM CHLORIDE [Suspect]
     Active Substance: SODIUM CHLORIDE
     Dosage: (0.9%) 250 ML, ONCE, USED TO DILUTE 840 MG OF PERTUZUMAB INJECTION (SECOND CHEMOTHERAPY)
     Route: 041
     Dates: start: 20230830, end: 20230830
  6. SODIUM CHLORIDE [Suspect]
     Active Substance: SODIUM CHLORIDE
     Dosage: (0.9%) 250 ML, ONCE, USED TO DILUTE 324 MG OF TRASTUZUMAB FOR INJECTION (SECOND CHEMOTHERAPY)
     Route: 041
     Dates: start: 20230831, end: 20230831
  7. DOCETAXEL [Suspect]
     Active Substance: DOCETAXEL
     Indication: Breast cancer female
     Dosage: 110 MG, ONCE, DILUTED WITH 250 ML OF 0.9% SODIUM CHLORIDE INJECTION (SECOND CHEMOTHERAPY)
     Route: 041
     Dates: start: 20230829, end: 20230829
  8. DOCETAXEL [Suspect]
     Active Substance: DOCETAXEL
     Indication: Chemotherapy
  9. PERTUZUMAB [Suspect]
     Active Substance: PERTUZUMAB
     Indication: Breast cancer female
     Dosage: 840 MG, ONCE, DILUTED WITH 250 ML OF 0.9% SODIUM CHLORIDE INJECTION (SECOND CHEMOTHERAPY)
     Route: 041
     Dates: start: 20230830, end: 20230830
  10. PERTUZUMAB [Suspect]
     Active Substance: PERTUZUMAB
     Indication: Chemotherapy
  11. TRASTUZUMAB [Suspect]
     Active Substance: TRASTUZUMAB
     Indication: Breast cancer female
     Dosage: 324 MG, ONCE, DILUTED WITH 250 ML OF 0.9% SODIUM CHLORIDE INJECTION (SECOND CHEMOTHERAPY)
     Route: 041
     Dates: start: 20230831, end: 20230831
  12. TRASTUZUMAB [Suspect]
     Active Substance: TRASTUZUMAB
     Indication: Chemotherapy

REACTIONS (4)
  - Myelosuppression [Recovering/Resolving]
  - Pyrexia [Recovering/Resolving]
  - White blood cell count decreased [Recovering/Resolving]
  - Asthenia [Recovering/Resolving]

NARRATIVE: CASE EVENT DATE: 20230901
